FAERS Safety Report 7325916-8 (Version None)
Quarter: 2011Q1

REPORT INFORMATION
  Report Type: 
  Country: None (occurrence: None)
  Receive Date: 20110218
  Receipt Date: 20110208
  Transmission Date: 20110831
  Serious: Yes (Hospitalization, Other)
  Sender: FDA-Public Use
  Company Number: US-000929

PATIENT
  Age: 50 Year
  Sex: Female

DRUGS (2)
  1. TRAZODONE HCL [Suspect]
     Indication: MAJOR DEPRESSION
     Dosage: (ORAL)
     Route: 048
  2. SEROQUEL [Suspect]

REACTIONS (3)
  - COMA [None]
  - RENAL FAILURE [None]
  - HYPOTENSION [None]
